FAERS Safety Report 11626732 (Version 1)
Quarter: 2015Q4

REPORT INFORMATION
  Report Type: Spontaneous
  Country: DE (occurrence: DE)
  Receive Date: 20151013
  Receipt Date: 20151013
  Transmission Date: 20160304
  Serious: Yes (Congenital Anomaly)
  Sender: FDA-Public Use
  Company Number: DE-TEVA-599266GER

PATIENT
  Age: 0 Year
  Sex: Male
  Weight: 3.37 kg

DRUGS (4)
  1. L-THYROXIN [Concomitant]
     Active Substance: LEVOTHYROXINE SODIUM
     Indication: HYPOTHYROIDISM
     Dosage: 50 MICROGRAM DAILY;
     Route: 064
     Dates: start: 20120629, end: 20130315
  2. ENALAPRIL [Suspect]
     Active Substance: ENALAPRIL
     Indication: HYPERTENSION
     Dosage: 20 MILLIGRAM DAILY;
     Route: 064
  3. PRESINOL [Concomitant]
     Active Substance: METHYLDOPA
     Indication: HYPERTENSION
     Dosage: 500 MILLIGRAM DAILY;
     Route: 064
  4. FOLIO [Concomitant]
     Active Substance: FOLIC ACID
     Indication: PROPHYLAXIS OF NEURAL TUBE DEFECT
     Dosage: .4 MILLIGRAM DAILY;
     Route: 064
     Dates: start: 20120629, end: 20130315

REACTIONS (1)
  - Pulmonary valve stenosis congenital [Recovered/Resolved with Sequelae]
